FAERS Safety Report 13988644 (Version 1)
Quarter: 2017Q3

REPORT INFORMATION
  Report Type: Spontaneous
  Country: US (occurrence: US)
  Receive Date: 20170919
  Receipt Date: 20170919
  Transmission Date: 20171128
  Serious: No
  Sender: FDA-Public Use
  Company Number: US-AMNEAL PHARMACEUTICALS-2016AMN00506

PATIENT
  Age: 69 Year
  Sex: Female
  Weight: 63.49 kg

DRUGS (3)
  1. GABAPENTIN. [Suspect]
     Active Substance: GABAPENTIN
     Indication: NECK PAIN
     Dosage: 600 MG, 4X/DAY
     Route: 048
     Dates: start: 2001
  2. COMPOUNDED LEVOTHYROXINE [Concomitant]
     Indication: THYROID DISORDER
     Dosage: UNK
  3. GABAPENTIN. [Suspect]
     Active Substance: GABAPENTIN
     Dosage: 600 UNK, UNK
     Route: 048
     Dates: start: 20160827

REACTIONS (3)
  - Abdominal discomfort [Unknown]
  - Oral discomfort [Unknown]
  - Drug ineffective [Unknown]

NARRATIVE: CASE EVENT DATE: 20160827
